FAERS Safety Report 4976469-0 (Version None)
Quarter: 2006Q2

REPORT INFORMATION
  Report Type: 
  Country: None (occurrence: None)
  Receive Date: 20060419
  Receipt Date: 20060414
  Transmission Date: 20061013
  Serious: Yes (Hospitalization)
  Sender: FDA-Public Use
  Company Number: US-ABBOTT-06P-163-0330745-00

PATIENT
  Sex: Female
  Weight: 81.72 kg

DRUGS (5)
  1. MAVIK [Suspect]
     Indication: HYPERTENSION
     Route: 048
     Dates: start: 20040101, end: 20060301
  2. ROSIGLITAZONE MALEATE [Concomitant]
     Indication: DIABETES MELLITUS
     Dosage: NOT REPORTED
     Route: 048
  3. METFORMIN [Concomitant]
     Indication: DIABETES MELLITUS
     Dosage: NOT REPORTED
     Route: 048
  4. AVANDAMET [Concomitant]
     Indication: DIABETES MELLITUS
     Dosage: NOT REPORTED
     Route: 048
  5. ZETIA [Concomitant]
     Indication: BLOOD CHOLESTEROL INCREASED
     Dosage: NOT REPORTED
     Route: 048

REACTIONS (1)
  - STEVENS-JOHNSON SYNDROME [None]
